FAERS Safety Report 14272813 (Version 1)
Quarter: 2017Q4

REPORT INFORMATION
  Report Type: Report from Study
  Country: SE (occurrence: SE)
  Receive Date: 20171211
  Receipt Date: 20171211
  Transmission Date: 20180321
  Serious: Yes (Death, Other)
  Sender: FDA-Public Use
  Company Number: SE-CUMBERLAND PHARMACEUTICALS INC.-2037015

PATIENT
  Age: 30 Year
  Sex: Female
  Weight: 106 kg

DRUGS (2)
  1. ACTIVATED CHARCOAL [Concomitant]
     Active Substance: ACTIVATED CHARCOAL
  2. ACETADOTE [Suspect]
     Active Substance: ACETYLCYSTEINE
     Indication: OVERDOSE
     Route: 042

REACTIONS (9)
  - Dose calculation error [None]
  - Cardiac arrest [Not Recovered/Not Resolved]
  - Pain [Unknown]
  - Urticaria [Unknown]
  - Incorrect dose administered [None]
  - Anaphylactic shock [Fatal]
  - Loss of consciousness [Recovered/Resolved]
  - Ventricular fibrillation [Not Recovered/Not Resolved]
  - Hypotension [Unknown]
